FAERS Safety Report 4878181-5 (Version None)
Quarter: 2005Q4

REPORT INFORMATION
  Report Type: 
  Country: None (occurrence: None)
  Receive Date: 20051209
  Receipt Date: 20050725
  Transmission Date: 20060501
  Serious: Yes (Death)
  Sender: FDA-Public Use
  Company Number: USA-2005-0020836

PATIENT
  Age: 20 Year
  Sex: Male
  Weight: 40.3701 kg

DRUGS (2)
  1. OXYCONTIN [Suspect]
     Route: 065
  2. ALCOHOL (ETHANOL) [Suspect]
     Route: 065

REACTIONS (3)
  - MULTIPLE DRUG OVERDOSE ACCIDENTAL [None]
  - POLYSUBSTANCE ABUSE [None]
  - ROAD TRAFFIC ACCIDENT [None]
